FAERS Safety Report 17025932 (Version 2)
Quarter: 2019Q4

REPORT INFORMATION
  Report Type: Report from Study
  Country: GR (occurrence: GR)
  Receive Date: 20191113
  Receipt Date: 20191202
  Transmission Date: 20200122
  Serious: Yes (Hospitalization)
  Sender: FDA-Public Use
  Company Number: GR-TAKEDA-2019TUS064212

PATIENT
  Age: 76 Year
  Sex: Female
  Weight: 100 kg

DRUGS (15)
  1. IXAZOMIB [Suspect]
     Active Substance: IXAZOMIB
     Indication: PLASMA CELL MYELOMA
     Dosage: 3 MILLIGRAM
     Route: 048
     Dates: start: 20190925, end: 20191024
  2. DEXAMETHASONE. [Suspect]
     Active Substance: DEXAMETHASONE
     Dosage: UNK
     Route: 065
     Dates: start: 20191106
  3. BEROVENT [Concomitant]
     Active Substance: ALBUTEROL SULFATE\IPRATROPIUM BROMIDE
     Indication: PROLONGED EXPIRATION
     Dosage: UNK
     Route: 055
     Dates: start: 20191024, end: 20191028
  4. ZEFFIX [Concomitant]
     Active Substance: LAMIVUDINE
     Indication: ANTIVIRAL TREATMENT
     Dosage: 100 MILLIGRAM, QD
     Route: 048
     Dates: start: 20190925
  5. PREDNISOLONE. [Concomitant]
     Active Substance: PREDNISOLONE
     Indication: RASH
     Dosage: 5 GRAM, QD
     Route: 048
     Dates: start: 20191006
  6. TAZOBACTAM [Concomitant]
     Active Substance: TAZOBACTAM
     Indication: BACTERIAL INFECTION
     Dosage: UNK UNK, TID
     Route: 042
     Dates: start: 20191020, end: 20191020
  7. MOXIFLOXACIN. [Concomitant]
     Active Substance: MOXIFLOXACIN
     Indication: BACTERIAL INFECTION
     Dosage: UNK UNK, QD
     Route: 048
     Dates: start: 20191019, end: 20191030
  8. PULMICORT TURBUHALER [Concomitant]
     Active Substance: BUDESONIDE
     Indication: PROLONGED EXPIRATION
     Dosage: UNK
     Route: 055
     Dates: start: 20191024, end: 20191028
  9. DEXAMETHASONE. [Suspect]
     Active Substance: DEXAMETHASONE
     Indication: PLASMA CELL MYELOMA
     Dosage: 40 MILLIGRAM
     Route: 048
     Dates: start: 20190925, end: 20191024
  10. LENALIDOMIDE [Suspect]
     Active Substance: LENALIDOMIDE
     Dosage: UNK
     Route: 065
     Dates: start: 20191106
  11. EPOETIN ALFA [Concomitant]
     Active Substance: ERYTHROPOIETIN
     Indication: ANAEMIA
     Dosage: UNK UNK, 1/WEEK
     Route: 042
     Dates: start: 20190919
  12. IXAZOMIB [Suspect]
     Active Substance: IXAZOMIB
     Dosage: UNK
     Route: 065
     Dates: start: 20191106
  13. LENALIDOMIDE [Suspect]
     Active Substance: LENALIDOMIDE
     Indication: PLASMA CELL MYELOMA
     Dosage: 10 MILLIGRAM
     Route: 048
     Dates: start: 20190925, end: 20191024
  14. VANCOMYCIN [Concomitant]
     Active Substance: VANCOMYCIN
     Indication: BACTERIAL INFECTION
     Dosage: UNK UNK, BID
     Route: 042
     Dates: start: 20191020
  15. SOLVETAN [Concomitant]
     Indication: BACTERIAL INFECTION
     Dosage: 2 GRAM, QD
     Route: 042
     Dates: start: 20191019, end: 20191019

REACTIONS (1)
  - Dyspnoea [Recovered/Resolved]

NARRATIVE: CASE EVENT DATE: 20191024
